FAERS Safety Report 24885889 (Version 1)
Quarter: 2025Q1

REPORT INFORMATION
  Report Type: Spontaneous
  Country: CN (occurrence: CN)
  Receive Date: 20250125
  Receipt Date: 20250125
  Transmission Date: 20250409
  Serious: Yes (Death, Hospitalization, Other)
  Sender: BRISTOL-MYERS SQUIBB COMPANY
  Company Number: CN-BRISTOL-MYERS SQUIBB COMPANY-2025-008423

PATIENT
  Age: 68 Year
  Sex: Male

DRUGS (9)
  1. AZACITIDINE [Suspect]
     Active Substance: AZACITIDINE
     Indication: Acute myeloid leukaemia
  2. AZACITIDINE [Suspect]
     Active Substance: AZACITIDINE
  3. VENETOCLAX [Suspect]
     Active Substance: VENETOCLAX
     Indication: Acute myeloid leukaemia
     Dosage: 28 DAYS OF VENETOCLAX?D1: 100 MG
  4. VENETOCLAX [Suspect]
     Active Substance: VENETOCLAX
  5. VENETOCLAX [Suspect]
     Active Substance: VENETOCLAX
  6. VENETOCLAX [Suspect]
     Active Substance: VENETOCLAX
  7. VENETOCLAX [Suspect]
     Active Substance: VENETOCLAX
  8. LEVOFLOXACIN [Concomitant]
     Active Substance: LEVOFLOXACIN
     Indication: Mycoplasma infection
  9. TIGECYCLINE [Concomitant]
     Active Substance: TIGECYCLINE
     Indication: Mycoplasma infection

REACTIONS (4)
  - Neutropenia [Unknown]
  - Thrombocytopenia [Unknown]
  - Pulmonary mucormycosis [Fatal]
  - Mucormycosis [Fatal]
